FAERS Safety Report 8021230-6 (Version None)
Quarter: 2012Q1

REPORT INFORMATION
  Report Type: 
  Country: None (occurrence: None)
  Receive Date: 20120104
  Receipt Date: 20111230
  Transmission Date: 20120608
  Serious: Yes (Hospitalization)
  Sender: FDA-Public Use
  Company Number: US-JNJFOC-20120100329

PATIENT
  Age: 53 Year
  Sex: Female
  Weight: 58 kg

DRUGS (6)
  1. SUDAFED 12 HOUR [Suspect]
     Route: 048
  2. ZOCOR [Concomitant]
     Indication: BLOOD CHOLESTEROL INCREASED
     Route: 065
  3. ANTIBIOTIC [Concomitant]
     Indication: SINUSITIS
     Route: 065
  4. SUDAFED 12 HOUR [Suspect]
     Indication: SINUSITIS
     Route: 048
     Dates: start: 20111226, end: 20111229
  5. ENALAPRIL MALEATE [Concomitant]
     Indication: HYPERTENSION
     Route: 065
  6. COENZYME Q10 [Concomitant]
     Indication: MEDICAL DIET
     Route: 065

REACTIONS (3)
  - DIZZINESS [None]
  - HEADACHE [None]
  - HYPERTENSION [None]
